FAERS Safety Report 4354339-9 (Version None)
Quarter: 2004Q2

REPORT INFORMATION
  Report Type: 
  Country: None (occurrence: None)
  Receive Date: 20040503
  Receipt Date: 20040414
  Transmission Date: 20050107
  Serious: Yes (Hospitalization)
  Sender: FDA-Public Use
  Company Number: M-04-110

PATIENT
  Age: 82 Year
  Sex: Male

DRUGS (7)
  1. POTASSIUM CHLORIDE [Suspect]
     Dosage: 10 MEQ PO
     Route: 048
  2. FLAGYL [Concomitant]
  3. CIPROFLOXACIN [Concomitant]
  4. HYDROCORTISONE [Concomitant]
  5. TAMSULOSIN [Concomitant]
  6. FUROSEMIDE [Concomitant]
  7. VITAMIN B-12 [Concomitant]

REACTIONS (3)
  - PHARMACEUTICAL PRODUCT COMPLAINT [None]
  - SEPSIS [None]
  - SWELLING FACE [None]
